FAERS Safety Report 8474980-1 (Version None)
Quarter: 2012Q2

REPORT INFORMATION
  Report Type: 
  Country: None (occurrence: None)
  Receive Date: 20120628
  Receipt Date: 20120626
  Transmission Date: 20120825
  Serious: Yes (Death)
  Sender: FDA-Public Use
  Company Number: PHHY2012CO052813

PATIENT
  Sex: Male

DRUGS (1)
  1. TASIGNA [Suspect]
     Dosage: 200 MG, UNK
     Route: 048
     Dates: start: 20100601, end: 20120528

REACTIONS (3)
  - POSTOPERATIVE WOUND INFECTION [None]
  - RENAL DISORDER [None]
  - DRUG RESISTANCE [None]
